FAERS Safety Report 8318138-5 (Version None)
Quarter: 2012Q2

REPORT INFORMATION
  Report Type: 
  Country: None (occurrence: None)
  Receive Date: 20120427
  Receipt Date: 20120424
  Transmission Date: 20120825
  Serious: Yes (Other)
  Sender: FDA-Public Use
  Company Number: JP-PFIZER INC-2012093333

PATIENT
  Age: 71 Year
  Sex: Female

DRUGS (2)
  1. NORVASC [Suspect]
     Indication: HYPERTENSION
     Dosage: 5 MG DAILY
     Route: 048
     Dates: start: 20031101
  2. PRAVASTATIN SODIUM [Suspect]
     Indication: HYPERLIPIDAEMIA
     Dosage: 10 MG DAILY
     Route: 048
     Dates: start: 20050401

REACTIONS (2)
  - HEARING IMPAIRED [None]
  - PRESBYACUSIS [None]
